FAERS Safety Report 7089804-7 (Version None)
Quarter: 2010Q4

REPORT INFORMATION
  Report Type: 
  Country: None (occurrence: None)
  Receive Date: 20101108
  Receipt Date: 20101027
  Transmission Date: 20110411
  Serious: Yes (Other)
  Sender: FDA-Public Use
  Company Number: JP-MERCK-1011USA00074

PATIENT
  Age: 61 Year
  Sex: Male

DRUGS (3)
  1. PEPCID [Suspect]
     Route: 048
  2. URSO 250 [Concomitant]
     Route: 065
  3. TEPRENONE [Concomitant]
     Route: 065

REACTIONS (1)
  - PNEUMONIA CRYPTOCOCCAL [None]
